FAERS Safety Report 5392831-9 (Version None)
Quarter: 2007Q3

REPORT INFORMATION
  Report Type: 
  Country: None (occurrence: None)
  Receive Date: 20070720
  Receipt Date: 20070710
  Transmission Date: 20080115
  Serious: Yes (Other)
  Sender: FDA-Public Use
  Company Number: GB-PFIZER INC-2007056931

PATIENT
  Age: 25 Year
  Sex: Female

DRUGS (1)
  1. SULFASALAZINE [Suspect]
     Indication: MUSCULOSKELETAL PAIN

REACTIONS (8)
  - DRUG INTOLERANCE [None]
  - HEADACHE [None]
  - LETHARGY [None]
  - LIVER FUNCTION TEST ABNORMAL [None]
  - LYMPHOCYTOSIS [None]
  - PYREXIA [None]
  - RASH PAPULAR [None]
  - RENAL IMPAIRMENT [None]
